FAERS Safety Report 11235590 (Version 1)
Quarter: 2015Q3

REPORT INFORMATION
  Report Type: Spontaneous
  Country: US (occurrence: US)
  Receive Date: 20150702
  Receipt Date: 20150702
  Transmission Date: 20151125
  Serious: No
  Sender: FDA-Public Use
  Company Number: US-009507513-1506USA011371

PATIENT
  Age: 4 Year
  Sex: Male

DRUGS (2)
  1. MONTELUKAST SODIUM. [Suspect]
     Active Substance: MONTELUKAST SODIUM
     Dosage: 5 MG, QD
     Route: 048
     Dates: start: 20150331, end: 20150422
  2. LORATADINE. [Concomitant]
     Active Substance: LORATADINE

REACTIONS (12)
  - Pyrexia [Recovered/Resolved]
  - Asthenia [Recovered/Resolved]
  - Abnormal behaviour [Recovered/Resolved]
  - Insomnia [Recovered/Resolved]
  - Platelet count decreased [Recovered/Resolved]
  - Rash [Recovered/Resolved]
  - Nasopharyngitis [Recovered/Resolved]
  - Constipation [Recovered/Resolved]
  - Overdose [Recovered/Resolved]
  - Dehydration [Recovered/Resolved]
  - Abdominal pain upper [Recovered/Resolved]
  - Arthralgia [Recovered/Resolved]

NARRATIVE: CASE EVENT DATE: 2015
